FAERS Safety Report 19546064 (Version 1)
Quarter: 2021Q3

REPORT INFORMATION
  Report Type: Spontaneous
  Country: US (occurrence: US)
  Receive Date: 20210713
  Receipt Date: 20210713
  Transmission Date: 20211014
  Serious: Yes (Other)
  Sender: FDA-Public Use
  Company Number: US-CELGENEUS-USA-20210701632

PATIENT
  Age: 81 Year
  Sex: Male
  Weight: 60.38 kg

DRUGS (1)
  1. POMALYST [Suspect]
     Active Substance: POMALIDOMIDE
     Indication: PLASMA CELL MYELOMA
     Dosage: 1 MILLIGRAM
     Route: 048
     Dates: start: 202012

REACTIONS (2)
  - Cerebrovascular accident [Recovered/Resolved with Sequelae]
  - Sinus headache [Recovered/Resolved with Sequelae]

NARRATIVE: CASE EVENT DATE: 20210621
